FAERS Safety Report 7213475-X (Version None)
Quarter: 2011Q1

REPORT INFORMATION
  Report Type: 
  Country: None (occurrence: None)
  Receive Date: 20110106
  Receipt Date: 20101223
  Transmission Date: 20110831
  Serious: Yes (Disabling, Other)
  Sender: FDA-Public Use
  Company Number: PHHY2010GB87642

PATIENT
  Age: 70 Year
  Sex: Female

DRUGS (7)
  1. DOCETAXEL [Suspect]
     Dosage: 100 MG/M2, UNK
     Route: 042
     Dates: start: 20101020, end: 20101020
  2. CYCLOPHOSPHAMIDE [Suspect]
  3. OMEPRAZOLE [Concomitant]
     Dosage: 20 MG, QD
  4. FLUOROURACIL [Suspect]
  5. EPIRUBICIN [Suspect]
  6. E45 [Concomitant]
  7. CO-CODAMOL [Concomitant]

REACTIONS (1)
  - PALMAR-PLANTAR ERYTHRODYSAESTHESIA SYNDROME [None]
